FAERS Safety Report 4563314-0 (Version None)
Quarter: 2005Q1

REPORT INFORMATION
  Report Type: 
  Country: None (occurrence: None)
  Receive Date: 20050128
  Receipt Date: 20031229
  Transmission Date: 20050727
  Serious: No
  Sender: FDA-Public Use
  Company Number: US-GLAXOSMITHKLINE-A0490789A

PATIENT
  Age: 61 Year
  Sex: Female

DRUGS (4)
  1. BUPROPION HCL [Suspect]
     Indication: DEPRESSION
     Route: 048
  2. ZYBAN [Suspect]
     Indication: DEPRESSION
     Dosage: 150MG TWICE PER DAY
     Route: 048
     Dates: start: 20031225
  3. MONOPRIL [Concomitant]
  4. PAXIL [Concomitant]

REACTIONS (2)
  - DEPRESSION [None]
  - DRUG INEFFECTIVE [None]
